FAERS Safety Report 9170884 (Version 1)
Quarter: 2013Q1

REPORT INFORMATION
  Report Type: Spontaneous
  Country: ES (occurrence: None)
  Receive Date: 20130312
  Receipt Date: 20130312
  Transmission Date: 20140127
  Serious: Yes (Other)
  Sender: FDA-Public Use
  Company Number: ES-1197002

PATIENT
  Age: 46 Year
  Sex: Male

DRUGS (1)
  1. TOBRADEX OPHTHALMIC SUSPENSION (TOBRADEX SUSPENSION) [Suspect]
     Route: 047
     Dates: start: 20130124, end: 20130124

REACTIONS (4)
  - Dermatitis bullous [None]
  - Photopsia [None]
  - Eye pruritus [None]
  - Conjunctival hyperaemia [None]
